FAERS Safety Report 12451731 (Version 1)
Quarter: 2016Q2

REPORT INFORMATION
  Report Type: Spontaneous
  Country: US (occurrence: US)
  Receive Date: 20160609
  Receipt Date: 20160609
  Transmission Date: 20160815
  Serious: No
  Sender: FDA-Public Use
  Company Number: US-GLAXOSMITHKLINE-US2016GSK075612

PATIENT
  Sex: Male

DRUGS (2)
  1. AMLODIPIN [Suspect]
     Active Substance: AMLODIPINE BESYLATE
     Indication: HYPERTENSION
  2. COREG [Suspect]
     Active Substance: CARVEDILOL
     Indication: HYPERTENSION

REACTIONS (5)
  - Dizziness [Unknown]
  - Feeling abnormal [Unknown]
  - Pruritus [Unknown]
  - Drug ineffective [Unknown]
  - Product quality issue [Unknown]
